FAERS Safety Report 15434373 (Version 1)
Quarter: 2018Q3

REPORT INFORMATION
  Report Type: Spontaneous
  Country: JP (occurrence: JP)
  Receive Date: 20180927
  Receipt Date: 20180927
  Transmission Date: 20181010
  Serious: Yes (Other)
  Sender: FDA-Public Use
  Company Number: PHHY2018JP103240

PATIENT
  Age: 12 Year
  Sex: Male

DRUGS (4)
  1. RITUXIMAB. [Suspect]
     Active Substance: RITUXIMAB
     Indication: DIFFUSE LARGE B-CELL LYMPHOMA
     Dosage: 25 MG, Q2W
     Route: 050
  2. METHOTREXATE. [Suspect]
     Active Substance: METHOTREXATE
     Indication: CENTRAL NERVOUS SYSTEM LYMPHOMA
     Route: 065
  3. METHOTREXATE. [Suspect]
     Active Substance: METHOTREXATE
     Indication: DIFFUSE LARGE B-CELL LYMPHOMA
  4. RITUXIMAB. [Suspect]
     Active Substance: RITUXIMAB
     Indication: CENTRAL NERVOUS SYSTEM LYMPHOMA
     Dosage: 375 MG/M2, CYCLIC
     Route: 042

REACTIONS (8)
  - Malignant neoplasm progression [Recovering/Resolving]
  - Drug resistance [Unknown]
  - Product use in unapproved indication [Unknown]
  - Paralysis [Recovered/Resolved]
  - Diffuse large B-cell lymphoma [Recovering/Resolving]
  - Facial paralysis [Recovered/Resolved]
  - Central nervous system lymphoma [Recovering/Resolving]
  - General physical health deterioration [Recovering/Resolving]
